FAERS Safety Report 5136456-9 (Version None)
Quarter: 2006Q4

REPORT INFORMATION
  Report Type: 
  Country: None (occurrence: None)
  Receive Date: 20061027
  Receipt Date: 20060710
  Transmission Date: 20070319
  Serious: No
  Sender: FDA-Public Use
  Company Number: US-BRISTOL-MYERS SQUIBB COMPANY-13437496

PATIENT

DRUGS (1)
  1. KENALOG-40 [Suspect]
     Indication: ANTIINFLAMMATORY THERAPY

REACTIONS (2)
  - NONSPECIFIC REACTION [None]
  - UNEVALUABLE EVENT [None]
